FAERS Safety Report 7961936-8 (Version None)
Quarter: 2011Q4

REPORT INFORMATION
  Report Type: 
  Country: None (occurrence: None)
  Receive Date: 20111207
  Receipt Date: 20111202
  Transmission Date: 20120403
  Serious: Yes (Death, Hospitalization, Other)
  Sender: FDA-Public Use
  Company Number: PL-ELI_LILLY_AND_COMPANY-PL201104000317

PATIENT
  Sex: Male
  Weight: 80 kg

DRUGS (1)
  1. XIGRIS [Suspect]
     Indication: SEPTIC SHOCK
     Dosage: 185 MG, UNKNOWN
     Route: 042
     Dates: start: 20110315, end: 20110320

REACTIONS (4)
  - DEATH [None]
  - BRAIN DEATH [None]
  - CEREBRAL HAEMORRHAGE [None]
  - BRAIN OEDEMA [None]
